FAERS Safety Report 17445818 (Version 1)
Quarter: 2020Q1

REPORT INFORMATION
  Report Type: Spontaneous
  Country: CN (occurrence: CN)
  Receive Date: 20200221
  Receipt Date: 20200221
  Transmission Date: 20200409
  Serious: Yes (Life-Threatening, Other)
  Sender: FDA-Public Use
  Company Number: CN-BAXTER-2020BAX003208

PATIENT
  Age: 12 Year
  Sex: Female
  Weight: 60 kg

DRUGS (10)
  1. ETOPOSIDE. [Suspect]
     Active Substance: ETOPOSIDE
     Indication: OVARIAN GERM CELL CHORIOCARCINOMA STAGE IV
     Dosage: ON DAY 1-3
     Route: 065
     Dates: start: 20181026
  2. DACTINOMYCIN [Suspect]
     Active Substance: DACTINOMYCIN
     Dosage: DAY 1-2 (3 CYCLES) EMA/CO CHEMOTHERAPY
     Route: 065
     Dates: start: 2018
  3. ETOPOSIDE. [Suspect]
     Active Substance: ETOPOSIDE
     Dosage: DAY 1-2 (3 CYCLES) EMA/CO CHEMOTHERAPY
     Route: 065
     Dates: start: 2018
  4. METHOTREXATE. [Suspect]
     Active Substance: METHOTREXATE
     Dosage: 12.5 MG WEEKLY
     Route: 037
     Dates: start: 2018
  5. ENDOXAN [Suspect]
     Active Substance: CYCLOPHOSPHAMIDE
     Indication: OVARIAN GERM CELL CHORIOCARCINOMA STAGE IV
     Dosage: ON DAY 8
     Route: 065
     Dates: start: 2018
  6. METHOTREXATE. [Suspect]
     Active Substance: METHOTREXATE
     Indication: OVARIAN GERM CELL CHORIOCARCINOMA STAGE IV
     Dosage: ON DAY 1 EMA/CO CHEMOTHERAPY
     Route: 065
     Dates: start: 2018
  7. METHYLTETRAHYDROFOLATE [5-METHYLTETRAHYDROFOLATE] [Suspect]
     Active Substance: LEVOMEFOLIC ACID
     Indication: PROPHYLAXIS
     Dosage: FOUR DOSES, 12 HOURS AFTER THE LAST DOSE OF MTX
     Route: 065
     Dates: start: 2018
  8. ETOPOSIDE. [Suspect]
     Active Substance: ETOPOSIDE
     Dosage: ON DAY 2 TO 3
     Route: 065
     Dates: start: 2018
  9. DACTINOMYCIN [Suspect]
     Active Substance: DACTINOMYCIN
     Indication: OVARIAN GERM CELL CHORIOCARCINOMA STAGE IV
     Dosage: ON DAY 1-2
     Route: 065
     Dates: start: 20181026
  10. VINCRISTINE [Suspect]
     Active Substance: VINCRISTINE
     Indication: OVARIAN GERM CELL CHORIOCARCINOMA STAGE IV
     Dosage: ON DAY 8
     Route: 065
     Dates: start: 2018

REACTIONS (5)
  - Bronchial haemorrhage [Recovering/Resolving]
  - Neutropenia [Unknown]
  - Acute respiratory distress syndrome [Recovering/Resolving]
  - Alopecia [Unknown]
  - Tumour lysis syndrome [Recovering/Resolving]

NARRATIVE: CASE EVENT DATE: 2018
